FAERS Safety Report 4613627-9 (Version None)
Quarter: 2005Q1

REPORT INFORMATION
  Report Type: 
  Country: None (occurrence: None)
  Receive Date: 20050315
  Receipt Date: 20040615
  Transmission Date: 20050727
  Serious: No
  Sender: FDA-Public Use
  Company Number: 8193

PATIENT
  Age: 58 Year
  Sex: Male

DRUGS (2)
  1. PAMIDRONATE DISODIUM [Suspect]
     Dosage: 90 MG INJ
     Dates: start: 20040408
  2. ZOLEDRONIC ACID [Suspect]
     Dosage: 4 MG FREQ IV
     Route: 042
     Dates: start: 20040401

REACTIONS (1)
  - HYPERCALCAEMIA [None]
